FAERS Safety Report 15166789 (Version 2)
Quarter: 2018Q3

REPORT INFORMATION
  Report Type: Spontaneous
  Country: CH (occurrence: CH)
  Receive Date: 20180719
  Receipt Date: 20180814
  Transmission Date: 20181010
  Serious: Yes (Life-Threatening, Other)
  Sender: FDA-Public Use
  Company Number: CH-GILEAD-2018-0348418

PATIENT
  Age: 55 Year
  Sex: Male

DRUGS (24)
  1. ABILIFY [Concomitant]
     Active Substance: ARIPIPRAZOLE
     Indication: MENTAL DISORDER
     Dosage: 15 MG, UNK
     Route: 048
     Dates: start: 20180414
  2. DIPIPERON [Concomitant]
     Active Substance: PIPAMPERONE
     Indication: MENTAL DISORDER
     Dosage: 40 MG, UNK
     Route: 048
     Dates: start: 20180414
  3. INDERAL [Concomitant]
     Active Substance: PROPRANOLOL HYDROCHLORIDE
     Indication: HEPATIC CIRRHOSIS
     Dosage: 10 MG, UNK
     Route: 048
     Dates: start: 20180414
  4. PRURI?MED [Concomitant]
     Indication: EYE DISORDER
  5. ANTIDRY CALM [Concomitant]
     Indication: SKIN DISORDER
     Dosage: UNK
     Dates: start: 20170208
  6. NIZORAL [Concomitant]
     Active Substance: KETOCONAZOLE
     Indication: SKIN DISORDER
     Dosage: 20 MG/G
     Dates: start: 20180313
  7. VOSEVI [Suspect]
     Active Substance: SOFOSBUVIR\VELPATASVIR\VOXILAPREVIR
     Indication: HEPATITIS C
     Dosage: UNK
     Route: 048
     Dates: start: 20180528
  8. AKINETON [Concomitant]
     Active Substance: BIPERIDEN HYDROCHLORIDE
     Indication: MENTAL DISORDER
     Dosage: 4 MG, UNK
     Route: 048
     Dates: start: 20180414
  9. HALDOL [Concomitant]
     Active Substance: HALOPERIDOL
     Indication: MENTAL DISORDER
     Dosage: 1 MG, UNK
     Route: 048
     Dates: start: 20180406
  10. LISINOPRIL HCT                     /01613901/ [Concomitant]
     Active Substance: HYDROCHLOROTHIAZIDE\LISINOPRIL
     Indication: HYPERTENSION
     Dosage: 20 + 12.5 MG
     Route: 048
     Dates: start: 20180414
  11. LACRYCON                           /02211501/ [Concomitant]
     Indication: SKIN DISORDER
  12. PRURI?MED [Concomitant]
     Indication: SKIN DISORDER
     Dosage: 200 ML, UNK
     Dates: start: 20170208
  13. XEPLION [Concomitant]
     Active Substance: PALIPERIDONE PALMITATE
     Indication: SKIN DISORDER
     Dosage: 50 MG/0.5 ML EVERY 28 DAYS
     Route: 030
     Dates: start: 20180104
  14. XEPLION [Concomitant]
     Active Substance: PALIPERIDONE PALMITATE
     Indication: EYE DISORDER
  15. CURANEL [Concomitant]
     Indication: SKIN DISORDER
     Dosage: 50 MG/1 ML EVERY WEEK ON TUESDAY + FRIDAY
     Dates: start: 20180104
  16. ANTIDRY CALM [Concomitant]
     Indication: EYE DISORDER
  17. KCL [Concomitant]
     Active Substance: POTASSIUM CHLORIDE
     Indication: BLOOD POTASSIUM DECREASED
     Dosage: 10 MMOL, UNK
     Route: 048
     Dates: start: 20180425
  18. PANTOZOL [Concomitant]
     Active Substance: PANTOPRAZOLE SODIUM
     Indication: ABDOMINAL PAIN
     Dosage: 20 MG, UNK
     Route: 048
     Dates: start: 20180414
  19. TORASEM [Concomitant]
     Active Substance: TORSEMIDE
     Indication: HYPERTENSION
     Dosage: 10 MG, UNK
     Route: 048
     Dates: start: 20180414
  20. STILNOX [Concomitant]
     Active Substance: ZOLPIDEM TARTRATE
     Indication: MENTAL DISORDER
     Dosage: 12.5 MG, UNK
     Route: 048
     Dates: start: 20180414
  21. LACRYCON                           /02211501/ [Concomitant]
     Indication: EYE DISORDER
     Dosage: 0.65 ML, UNK
     Route: 047
     Dates: start: 20180414, end: 20180515
  22. NIZORAL [Concomitant]
     Active Substance: KETOCONAZOLE
     Indication: EYE DISORDER
  23. XARELTO [Concomitant]
     Active Substance: RIVAROXABAN
     Indication: THROMBOSIS
     Dosage: 1X15 MG
  24. CURANEL [Concomitant]
     Indication: EYE DISORDER

REACTIONS (4)
  - Blood bilirubin increased [Not Recovered/Not Resolved]
  - Hepatocellular carcinoma [Not Recovered/Not Resolved]
  - Blood lactate dehydrogenase increased [Not Recovered/Not Resolved]
  - Laboratory test abnormal [Not Recovered/Not Resolved]

NARRATIVE: CASE EVENT DATE: 20180614
